FAERS Safety Report 12411260 (Version 1)
Quarter: 2016Q2

REPORT INFORMATION
  Report Type: Spontaneous
  Country: US (occurrence: None)
  Receive Date: 20160526
  Receipt Date: 20160526
  Transmission Date: 20160815
  Serious: Yes (Disabling)
  Sender: FDA-Public Use
  Company Number: None

PATIENT
  Age: 74 Year
  Sex: Female
  Weight: 63.5 kg

DRUGS (10)
  1. EDARBI [Concomitant]
     Active Substance: AZILSARTAN KAMEDOXOMIL
  2. VIT (MULTI) BIOTIN [Concomitant]
  3. FISH OIL [Concomitant]
     Active Substance: FISH OIL
  4. CIPRO [Suspect]
     Active Substance: CIPROFLOXACIN HYDROCHLORIDE
     Indication: DIVERTICULITIS
     Dosage: 500MG 2X DAY 2 PILLS TWICE/DAY MOUTH
     Route: 048
     Dates: start: 1999, end: 201508
  5. TYLENOL [Concomitant]
     Active Substance: ACETAMINOPHEN
  6. IBUPROFEN. [Concomitant]
     Active Substance: IBUPROFEN
  7. CIPRO [Suspect]
     Active Substance: CIPROFLOXACIN HYDROCHLORIDE
     Indication: MALAISE
     Dosage: 500MG 2X DAY 2 PILLS TWICE/DAY MOUTH
     Route: 048
     Dates: start: 1999, end: 201508
  8. CLONIDINE. [Concomitant]
     Active Substance: CLONIDINE
  9. NADOLOL. [Concomitant]
     Active Substance: NADOLOL
  10. OSTEO-BIFLEX [Concomitant]

REACTIONS (3)
  - Neuropathy peripheral [None]
  - Gait disturbance [None]
  - Balance disorder [None]

NARRATIVE: CASE EVENT DATE: 2010
